FAERS Safety Report 18992722 (Version 1)
Quarter: 2021Q1

REPORT INFORMATION
  Report Type: Report from Study
  Country: CA (occurrence: CA)
  Receive Date: 20210310
  Receipt Date: 20210310
  Transmission Date: 20210420
  Serious: Yes (Death, Other)
  Sender: FDA-Public Use
  Company Number: CA-PFIZER INC-2021243995

PATIENT
  Age: 74 Year
  Sex: Female

DRUGS (10)
  1. ACETAMINOPHEN;BUTALBITAL [Concomitant]
     Active Substance: ACETAMINOPHEN\BUTALBITAL
     Dosage: 500 MG, 1 EVERY 4 HOURS
     Route: 048
  2. ATORVASTATIN CALCIUM. [Suspect]
     Active Substance: ATORVASTATIN CALCIUM
     Dosage: 20 MG, 1X/DAY
     Route: 048
  3. PERINDOPRIL ERBUMINE. [Concomitant]
     Active Substance: PERINDOPRIL ERBUMINE
     Dosage: 20 MG, 1X/DAY
     Route: 065
  4. SANDOSTATIN LAR DEPOT [Suspect]
     Active Substance: OCTREOTIDE ACETATE
     Indication: NEUROENDOCRINE TUMOUR
     Dosage: 20 MG, MONTHLY
     Route: 030
  5. AMLODIPINE BESILATE [Suspect]
     Active Substance: AMLODIPINE BESYLATE
     Dosage: 5 MG, 1X/DAY
     Route: 048
  6. SANDOSTATIN [Suspect]
     Active Substance: OCTREOTIDE ACETATE
     Indication: NEUROENDOCRINE TUMOUR
     Dosage: 100 UG, 2X/DAY
     Route: 058
  7. VOLTAREN EMULGEL [Suspect]
     Active Substance: DICLOFENAC DIETHYLAMINE
     Dosage: 2.32 %, 2X/DAY
     Route: 061
  8. EURO D [Concomitant]
     Dosage: 1000 IU, 1X/DAY
     Route: 048
  9. DICYCLOMINE HYDROCHLORIDE. [Concomitant]
     Active Substance: DICYCLOMINE HYDROCHLORIDE
     Dosage: 10 MG, 2X/DAY
     Route: 048
  10. PROLIA [Concomitant]
     Active Substance: DENOSUMAB
     Dosage: 60 MG
     Route: 058

REACTIONS (22)
  - Injection site reaction [Fatal]
  - Parotitis [Fatal]
  - Pruritus [Fatal]
  - Bronchitis [Fatal]
  - Discharge [Fatal]
  - Erythema [Fatal]
  - Peripheral swelling [Fatal]
  - Skin induration [Fatal]
  - Skin lesion [Fatal]
  - Death [Fatal]
  - Rash [Fatal]
  - Osteoarthritis [Fatal]
  - Back pain [Fatal]
  - Sinusitis [Fatal]
  - Arthralgia [Fatal]
  - Neck pain [Fatal]
  - Acne [Fatal]
  - Arthropod bite [Fatal]
  - Eczema [Fatal]
  - Fibromyalgia [Fatal]
  - Needle issue [Fatal]
  - Blood pressure systolic increased [Fatal]
